FAERS Safety Report 22086381 (Version 1)
Quarter: 2023Q1

REPORT INFORMATION
  Report Type: Spontaneous
  Country: JP (occurrence: JP)
  Receive Date: 20230312
  Receipt Date: 20230312
  Transmission Date: 20230418
  Serious: Yes (Other)
  Sender: FDA-Public Use
  Company Number: JP-BRISTOL-MYERS SQUIBB COMPANY-2023-034272

PATIENT
  Age: 85 Year
  Sex: Male

DRUGS (2)
  1. DASATINIB [Suspect]
     Active Substance: DASATINIB
     Indication: Chronic myeloid leukaemia
     Dates: start: 201701
  2. DASATINIB [Suspect]
     Active Substance: DASATINIB
     Dosage: 20 MG/DAY
     Dates: start: 201701

REACTIONS (2)
  - Cardiac failure congestive [Unknown]
  - Primary effusion lymphoma [Unknown]
